FAERS Safety Report 17257014 (Version 2)
Quarter: 2025Q4

REPORT INFORMATION
  Report Type: Spontaneous
  Country: EU (occurrence: EU)
  Receive Date: 20200110
  Receipt Date: 20251003
  Transmission Date: 20260118
  Serious: Yes (Other)
  Sender: MYLAN
  Company Number: EU-SUN PHARMACEUTICAL INDUSTRIES LTD-2019RR-223150

PATIENT
  Age: 43 Year
  Sex: Male

DRUGS (6)
  1. ZOLEDRONIC ACID [Suspect]
     Active Substance: ZOLEDRONIC ACID
     Indication: Prostate cancer
     Dosage: UNK
  2. DOCETAXEL [Suspect]
     Active Substance: DOCETAXEL
     Indication: Prostate cancer
     Dosage: 10 CYCLE
  3. PREDNISOLONE [Suspect]
     Active Substance: PREDNISOLONE
     Indication: Metastases to liver
     Dosage: UNK
  4. ABIRATERONE [Suspect]
     Active Substance: ABIRATERONE
     Indication: Metastases to liver
     Dosage: UNK
  5. BICALUTAMIDE [Concomitant]
     Active Substance: BICALUTAMIDE
     Indication: Prostate cancer
     Dosage: UNK
  6. LEUPROLIDE ACETATE [Concomitant]
     Active Substance: LEUPROLIDE ACETATE
     Indication: Prostate cancer
     Dosage: UNK

REACTIONS (3)
  - Drug ineffective [Unknown]
  - Muscular weakness [Unknown]
  - Fatigue [Unknown]
